APPROVED DRUG PRODUCT: CLONIDINE HYDROCHLORIDE
Active Ingredient: CLONIDINE HYDROCHLORIDE
Strength: 0.3MG
Dosage Form/Route: TABLET;ORAL
Application: A077901 | Product #003 | TE Code: AB
Applicant: PRINSTON PHARMACEUTICAL INC
Approved: Mar 9, 2007 | RLD: No | RS: No | Type: RX